FAERS Safety Report 6075447-0 (Version None)
Quarter: 2009Q1

REPORT INFORMATION
  Report Type: 
  Country: None (occurrence: None)
  Receive Date: 20090212
  Receipt Date: 20090206
  Transmission Date: 20090719
  Serious: Yes (Disabling, Other)
  Sender: FDA-Public Use
  Company Number: A0767148A

PATIENT
  Age: 50 Year
  Sex: Female

DRUGS (4)
  1. TYKERB [Suspect]
     Indication: BREAST CANCER
     Dosage: 1250MG PER DAY
     Route: 048
     Dates: start: 20070404, end: 20071101
  2. CHEMOTHERAPY [Concomitant]
  3. XELODA [Concomitant]
     Dates: end: 20070601
  4. KEPPRA [Concomitant]

REACTIONS (3)
  - RASH [None]
  - SKIN ULCER [None]
  - SWELLING [None]
